FAERS Safety Report 12667267 (Version 1)
Quarter: 2016Q3

REPORT INFORMATION
  Report Type: Spontaneous
  Country: US (occurrence: None)
  Receive Date: 20160818
  Receipt Date: 20160818
  Transmission Date: 20161109
  Serious: Yes (Death)
  Sender: FDA-Public Use
  Company Number: None

PATIENT
  Age: 90 Year
  Sex: Female

DRUGS (1)
  1. RUXOLITINIB, 5 MG INCYTE [Suspect]
     Active Substance: RUXOLITINIB
     Indication: CHRONIC LEUKAEMIA
     Route: 048
     Dates: start: 20150331, end: 20150713

REACTIONS (10)
  - Pneumonia [None]
  - Lung infiltration [None]
  - Subdural haematoma [None]
  - Pulmonary oedema [None]
  - Disease progression [None]
  - Therapy non-responder [None]
  - White blood cell count increased [None]
  - Anaemia [None]
  - Drug intolerance [None]
  - Quality of life decreased [None]

NARRATIVE: CASE EVENT DATE: 20150624
